FAERS Safety Report 7866841-3 (Version None)
Quarter: 2011Q4

REPORT INFORMATION
  Report Type: 
  Country: None (occurrence: None)
  Receive Date: 20111028
  Receipt Date: 20111019
  Transmission Date: 20120403
  Serious: Yes (Death, Other)
  Sender: FDA-Public Use
  Company Number: RU-SANOFI-AVENTIS-2011SA057712

PATIENT
  Age: 72 Year
  Sex: Male
  Weight: 72 kg

DRUGS (7)
  1. FLUDARABINE PHOSPHATE [Suspect]
     Dosage: DOSE:5 UNIT(S)
     Route: 048
     Dates: start: 20100713, end: 20100715
  2. FLUDARABINE PHOSPHATE [Suspect]
     Dosage: DOSE:5 UNIT(S)
     Route: 048
     Dates: start: 20110223, end: 20110225
  3. FLUDARABINE PHOSPHATE [Suspect]
     Dosage: DOSE:5 UNIT(S)
     Route: 048
     Dates: start: 20100930, end: 20101002
  4. FLUDARABINE PHOSPHATE [Suspect]
     Route: 048
     Dates: start: 20110426, end: 20110426
  5. FLUDARABINE PHOSPHATE [Suspect]
     Dosage: DOSE:5 UNIT(S)
     Route: 048
     Dates: start: 20100815, end: 20100817
  6. FLUDARABINE PHOSPHATE [Suspect]
     Dosage: DOSE:5 UNIT(S)
     Route: 048
     Dates: start: 20100602, end: 20100604
  7. FLUDARABINE PHOSPHATE [Suspect]
     Dosage: DOSE:5 UNIT(S)
     Route: 048
     Dates: start: 20101113, end: 20101115

REACTIONS (11)
  - DIZZINESS [None]
  - RASH [None]
  - TONGUE DISCOLOURATION [None]
  - PYREXIA [None]
  - OROPHARYNGEAL PAIN [None]
  - HEADACHE [None]
  - RASH GENERALISED [None]
  - MUCOSAL ULCERATION [None]
  - MALAISE [None]
  - DEATH [None]
  - ABDOMINAL PAIN [None]
